FAERS Safety Report 7344821-4 (Version None)
Quarter: 2011Q1

REPORT INFORMATION
  Report Type: 
  Country: None (occurrence: None)
  Receive Date: 20110310
  Receipt Date: 20100706
  Transmission Date: 20110831
  Serious: Yes (Hospitalization)
  Sender: FDA-Public Use
  Company Number: VA-BAYER-200938965NA

PATIENT
  Sex: Female
  Weight: 74.83 kg

DRUGS (4)
  1. YAZ [Suspect]
     Indication: MENSTRUATION IRREGULAR
  2. ADVIL [Concomitant]
     Dosage: 2004
     Route: 065
  3. YAZ [Suspect]
     Indication: ORAL CONTRACEPTION
     Dosage: 2003, 2004 AND 2007
     Route: 048
     Dates: start: 20080128
  4. YASMIN [Suspect]
     Indication: ORAL CONTRACEPTION
     Dosage: 2003, 2004 AND 2007
     Route: 048
     Dates: start: 20021223

REACTIONS (9)
  - GASTROINTESTINAL DISORDER [None]
  - ABDOMINAL DISCOMFORT [None]
  - CHOLECYSTITIS CHRONIC [None]
  - BACK PAIN [None]
  - NAUSEA [None]
  - GALLBLADDER CHOLESTEROLOSIS [None]
  - ABDOMINAL PAIN [None]
  - ABDOMINAL PAIN UPPER [None]
  - ABDOMINAL DISTENSION [None]
